FAERS Safety Report 25690194 (Version 1)
Quarter: 2025Q3

REPORT INFORMATION
  Report Type: Spontaneous
  Country: US (occurrence: US)
  Receive Date: 20250818
  Receipt Date: 20250818
  Transmission Date: 20251021
  Serious: No
  Sender: STALLERGENES
  Company Number: US-STALCOR-2025-AER-02098

PATIENT
  Age: 5 Year
  Sex: Female

DRUGS (1)
  1. PALFORZIA [Suspect]
     Active Substance: PEANUT
     Indication: Food allergy
     Dosage: 300MG: LEVEL 11: MIX CONTENTS OF 1 SACHET WELL WITH SEMISOLID FOOD AS DIRECTED AND CONSUME ONCE DAIL
     Route: 048

REACTIONS (3)
  - Illness [Unknown]
  - Pruritus [Recovered/Resolved]
  - Product dose omission issue [Unknown]
